FAERS Safety Report 5821437-X (Version None)
Quarter: 2008Q3

REPORT INFORMATION
  Report Type: 
  Country: None (occurrence: None)
  Receive Date: 20080724
  Receipt Date: 20080718
  Transmission Date: 20090109
  Serious: Yes (Life-Threatening, Hospitalization)
  Sender: FDA-Public Use
  Company Number: A0738444A

PATIENT
  Sex: Male

DRUGS (1)
  1. HYCAMTIN [Suspect]
     Indication: SMALL CELL LUNG CANCER STAGE UNSPECIFIED
     Dosage: 4MG SINGLE DOSE
     Route: 042
     Dates: start: 20080701, end: 20080701

REACTIONS (2)
  - NEUROLOGICAL INFECTION [None]
  - SEPSIS [None]
